FAERS Safety Report 10100634 (Version 1)
Quarter: 2014Q2

REPORT INFORMATION
  Report Type: Report from Study
  Country: BE (occurrence: BE)
  Receive Date: 20140423
  Receipt Date: 20140423
  Transmission Date: 20141212
  Serious: Yes (Hospitalization)
  Sender: FDA-Public Use
  Company Number: BE-BRISTOL-MYERS SQUIBB COMPANY-20654752

PATIENT
  Age: 65 Year
  Sex: Female
  Weight: 76 kg

DRUGS (13)
  1. ERBITUX SOLN FOR INF 5MG/ML [Suspect]
     Indication: COLORECTAL CANCER METASTATIC
     Dosage: LAST DOSE: 08-FEB-2014
     Route: 042
     Dates: start: 20140206
  2. OXALIPLATIN [Suspect]
     Indication: COLORECTAL CANCER METASTATIC
     Dosage: LAST DOSE: 08-FEB-2014
     Route: 042
     Dates: start: 20140206
  3. 5-FLUOROURACIL [Suspect]
     Indication: COLORECTAL CANCER METASTATIC
     Dosage: 2400 MG/M2?LAST DOSE: 08-FEB-2014
     Route: 042
     Dates: start: 20140206
  4. FORLAX [Concomitant]
     Indication: CONSTIPATION
     Route: 048
  5. L-THYROXINE [Concomitant]
     Route: 048
  6. MACROGOL [Concomitant]
     Indication: CONSTIPATION
     Route: 048
  7. SODIUM CHLORIDE [Concomitant]
     Indication: CONSTIPATION
     Route: 048
  8. POTASSIUM CHLORIDE [Concomitant]
     Indication: CONSTIPATION
     Route: 048
  9. SODIUM HYDROGEN CARBONATE [Concomitant]
     Indication: CONSTIPATION
     Route: 048
  10. MINOCYCLINE [Concomitant]
     Indication: RASH
     Route: 048
  11. ROZEX [Concomitant]
     Indication: RASH
     Dosage: 1 DF=1 UNIT
     Route: 061
  12. PANTOMED [Concomitant]
     Indication: PROPHYLAXIS AGAINST GASTROINTESTINAL ULCER
     Route: 048
  13. PARACETAMOL [Concomitant]
     Indication: PAIN
     Route: 048

REACTIONS (1)
  - Large intestinal obstruction [Not Recovered/Not Resolved]
